FAERS Safety Report 23949482 (Version 1)
Quarter: 2024Q2

REPORT INFORMATION
  Report Type: Spontaneous
  Country: DE (occurrence: DE)
  Receive Date: 20240607
  Receipt Date: 20240607
  Transmission Date: 20240716
  Serious: Yes (Hospitalization)
  Sender: FDA-Public Use
  Company Number: None

PATIENT
  Age: 80 Year
  Sex: Female

DRUGS (2)
  1. PREDNISOLONE [Suspect]
     Active Substance: PREDNISOLONE
     Indication: Autoimmune hepatitis
     Dosage: 40 MILLIGRAM, QD (INITIALLY)
     Route: 065
     Dates: start: 202107, end: 2021
  2. AZATHIOPRINE [Suspect]
     Active Substance: AZATHIOPRINE
     Indication: Autoimmune hepatitis
     Dosage: 50 MILLIGRAM, QD (CORRESPONDING TO 1.5 MG/KG BW)
     Route: 065
     Dates: start: 202107, end: 2021

REACTIONS (3)
  - CD4 lymphocytes decreased [Unknown]
  - Bronchopulmonary aspergillosis [Unknown]
  - Herpes simplex pneumonia [Unknown]

NARRATIVE: CASE EVENT DATE: 20210101
